FAERS Safety Report 5670028-2 (Version None)
Quarter: 2008Q1

REPORT INFORMATION
  Report Type: 
  Country: None (occurrence: None)
  Receive Date: 20080312
  Receipt Date: 20080225
  Transmission Date: 20080703
  Serious: Yes (Hospitalization)
  Sender: FDA-Public Use
  Company Number: 08-000378

PATIENT
  Age: 7 Month
  Sex: Male

DRUGS (1)
  1. DURICEF [Suspect]
     Indication: EAR INFECTION
     Dates: start: 20080223, end: 20080224

REACTIONS (3)
  - GENERALISED OEDEMA [None]
  - PYREXIA [None]
  - RASH MACULAR [None]
